FAERS Safety Report 7568944-X (Version None)
Quarter: 2011Q2

REPORT INFORMATION
  Report Type: 
  Country: None (occurrence: None)
  Receive Date: 20110623
  Receipt Date: 20110614
  Transmission Date: 20111010
  Serious: Yes (Other)
  Sender: FDA-Public Use
  Company Number: RU-ASTRAZENECA-2011SE36759

PATIENT
  Age: 76 Month
  Sex: Male
  Weight: 20 kg

DRUGS (1)
  1. NEXIUM [Suspect]
     Indication: PROPHYLAXIS AGAINST GASTROINTESTINAL ULCER
     Route: 042
     Dates: start: 20110202, end: 20110329

REACTIONS (3)
  - DRUG INEFFECTIVE FOR UNAPPROVED INDICATION [None]
  - GASTRITIS HAEMORRHAGIC [None]
  - OFF LABEL USE [None]
